FAERS Safety Report 6745711-8 (Version None)
Quarter: 2010Q2

REPORT INFORMATION
  Report Type: 
  Country: None (occurrence: None)
  Receive Date: 20100528
  Receipt Date: 20100524
  Transmission Date: 20101027
  Serious: Yes (Life-Threatening)
  Sender: FDA-Public Use
  Company Number: JP-ASTRAZENECA-2010SE17410

PATIENT
  Age: 80 Year
  Sex: Female
  Weight: 46 kg

DRUGS (8)
  1. SEROQUEL [Suspect]
     Indication: HALLUCINATION
     Route: 048
     Dates: start: 20100213, end: 20100215
  2. SEROQUEL [Suspect]
     Indication: DELUSION
     Route: 048
     Dates: start: 20100213, end: 20100215
  3. SEROQUEL [Suspect]
     Route: 048
     Dates: start: 20100219, end: 20100224
  4. SEROQUEL [Suspect]
     Route: 048
     Dates: start: 20100219, end: 20100224
  5. SEROQUEL [Suspect]
     Route: 048
     Dates: start: 20100225, end: 20100329
  6. SEROQUEL [Suspect]
     Route: 048
     Dates: start: 20100225, end: 20100329
  7. SEROQUEL [Suspect]
     Route: 048
     Dates: start: 20100330, end: 20100407
  8. SEROQUEL [Suspect]
     Route: 048
     Dates: start: 20100330, end: 20100407

REACTIONS (1)
  - PANCYTOPENIA [None]
